FAERS Safety Report 21882978 (Version 3)
Quarter: 2023Q4

REPORT INFORMATION
  Report Type: Report from Study
  Country: US (occurrence: US)
  Receive Date: 20230119
  Receipt Date: 20231204
  Transmission Date: 20240110
  Serious: Yes (Other)
  Sender: FDA-Public Use
  Company Number: US-TAKEDA-2023TUS003480

PATIENT
  Age: 77 Year
  Sex: Male
  Weight: 75.283 kg

DRUGS (12)
  1. MOBOCERTINIB [Suspect]
     Active Substance: MOBOCERTINIB
     Indication: Lung neoplasm malignant
     Dosage: 120 MILLIGRAM, QD
     Route: 048
     Dates: start: 20221221
  2. MOBOCERTINIB [Suspect]
     Active Substance: MOBOCERTINIB
     Dosage: 120 MILLIGRAM, QD
     Route: 048
  3. FERROUS SULFATE [Concomitant]
     Active Substance: FERROUS SULFATE
     Dosage: 325 MILLIGRAM
     Route: 065
  4. FUROSEMIDE [Concomitant]
     Active Substance: FUROSEMIDE
     Dosage: 40 MILLIGRAM
     Route: 065
  5. METHIMAZOLE [Concomitant]
     Active Substance: METHIMAZOLE
     Dosage: 5 MILLIGRAM
     Route: 065
  6. POTASSIUM [Concomitant]
     Active Substance: POTASSIUM
     Dosage: 10 MILLIEQUIVALENT
     Route: 065
  7. ROSUVASTATIN CALCIUM [Concomitant]
     Active Substance: ROSUVASTATIN CALCIUM
     Dosage: 10 MILLIGRAM
     Route: 065
  8. AMLODIPINE [Concomitant]
     Active Substance: AMLODIPINE BESYLATE
     Dosage: UNK
     Route: 065
  9. MINERALS\VITAMINS [Concomitant]
     Active Substance: MINERALS\VITAMINS
     Dosage: UNK
     Route: 065
  10. ELIQUIS [Concomitant]
     Active Substance: APIXABAN
     Dosage: UNK
     Route: 065
  11. IRON [Concomitant]
     Active Substance: IRON
     Dosage: UNK
     Route: 065
  12. LASIX [Concomitant]
     Active Substance: FUROSEMIDE
     Dosage: UNK
     Route: 065

REACTIONS (8)
  - Lung neoplasm malignant [Unknown]
  - Taste disorder [Unknown]
  - Paronychia [Unknown]
  - Decreased appetite [Unknown]
  - Diarrhoea [Unknown]
  - Dry mouth [Unknown]
  - Onychoclasis [Not Recovered/Not Resolved]
  - Dry skin [Unknown]

NARRATIVE: CASE EVENT DATE: 20221221
